FAERS Safety Report 16810769 (Version 1)
Quarter: 2019Q3

REPORT INFORMATION
  Report Type: Spontaneous
  Country: CH (occurrence: CH)
  Receive Date: 20190916
  Receipt Date: 20190916
  Transmission Date: 20191005
  Serious: Yes (Hospitalization, Other)
  Sender: FDA-Public Use
  Company Number: CH-PFIZER INC-2019390638

PATIENT
  Age: 69 Year
  Sex: Male
  Weight: 46 kg

DRUGS (18)
  1. OXYNORM [Suspect]
     Active Substance: OXYCODONE HYDROCHLORIDE
     Dosage: UNK UNK, AS NEEDED
  2. BECOZYME [VITAMIN B COMPLEX] [Concomitant]
     Active Substance: VITAMINS
     Dosage: UNK UNK, 3X/DAY(1-1-1)
  3. PANTOZOL [Concomitant]
     Active Substance: PANTOPRAZOLE SODIUM
     Dosage: 20 MG, 1X/DAY (1-0-0)
     Route: 048
  4. ALUCOL [ALGELDRATE] [Concomitant]
     Dosage: UNK UNK, AS NEEDED
     Route: 048
  5. REMERON [Suspect]
     Active Substance: MIRTAZAPINE
     Dosage: 30 MG, 1X/DAY
     Route: 048
  6. DOMPERIDON MEPHA [Suspect]
     Active Substance: DOMPERIDONE
     Dosage: 10 MG, AS NEEDED
  7. BENERVA [Concomitant]
     Active Substance: THIAMINE HYDROCHLORIDE
     Dosage: 100 MG, 1X/DAY (1-0-0)
     Route: 048
  8. SERESTA [Suspect]
     Active Substance: OXAZEPAM
     Dosage: 25 MG, 2X/DAY
     Route: 048
  9. CANDESARTAN MEPHA [Suspect]
     Active Substance: CANDESARTAN CILEXETIL
     Dosage: 16 MG, 1X/DAY
     Route: 048
  10. AMLODIPIN PFIZER [Suspect]
     Active Substance: AMLODIPINE BESYLATE
     Dosage: 5 MG, AS NEEDED
  11. IMPORTAL [Concomitant]
     Active Substance: LACTITOL
     Dosage: 50 GTT, UNK (20-20-10  GTT)
     Route: 048
  12. HALDOL [Suspect]
     Active Substance: HALOPERIDOL
     Dosage: 2 DROPS THREE TIMES A DAY, 4 DROPS AT NIGHT AND ADDITIONALLY IF REQUIRED
     Route: 048
  13. TARGIN [Suspect]
     Active Substance: NALOXONE HYDROCHLORIDE\OXYCODONE HYDROCHLORIDE
     Dosage: UNK, 2X/DAY (10 MG / 5 MG)
     Route: 048
  14. VIMPAT [Suspect]
     Active Substance: LACOSAMIDE
     Dosage: 200 MG, 2X/DAY
     Route: 048
  15. TRITTICO [Suspect]
     Active Substance: TRAZODONE HYDROCHLORIDE
     Dosage: UNK, AS NEEDED
  16. KALCIPOS [Concomitant]
     Active Substance: CALCIUM CARBONATE
     Dosage: UNK, 1X/DAY (500 MG/800 IE, 1-0-0)
     Route: 048
  17. NOVALGIN (METAMIZOLE SODIUM) [Concomitant]
     Active Substance: METAMIZOLE SODIUM
     Dosage: UNK UNK, AS NEEDED
  18. KEPPRA [Suspect]
     Active Substance: LEVETIRACETAM
     Dosage: 500 MG, 2X/DAY
     Route: 048

REACTIONS (4)
  - Fall [Recovered/Resolved]
  - Face injury [Unknown]
  - Eye haematoma [Unknown]
  - Craniocerebral injury [Unknown]

NARRATIVE: CASE EVENT DATE: 20190823
